FAERS Safety Report 5496319-6 (Version None)
Quarter: 2007Q4

REPORT INFORMATION
  Report Type: 
  Country: None (occurrence: None)
  Receive Date: 20071025
  Receipt Date: 20070326
  Transmission Date: 20080405
  Serious: Yes (Hospitalization)
  Sender: FDA-Public Use
  Company Number: A0644650A

PATIENT
  Age: 70 Year
  Sex: Female

DRUGS (5)
  1. ADVAIR DISKUS 100/50 [Suspect]
     Indication: CHRONIC OBSTRUCTIVE PULMONARY DISEASE
     Route: 055
     Dates: end: 20070301
  2. SPIRIVA [Concomitant]
  3. BLOOD PRESSURE MEDICATION [Concomitant]
  4. FOSAMAX [Concomitant]
  5. DAILY VITAMIN [Concomitant]

REACTIONS (2)
  - LUNG INFECTION [None]
  - PNEUMONIA [None]
